FAERS Safety Report 10369289 (Version 1)
Quarter: 2014Q1

REPORT INFORMATION
  Report Type: Spontaneous
  Country: US (occurrence: None)
  Receive Date: 20140306
  Receipt Date: 20140306
  Transmission Date: 20141002
  Serious: Yes (Hospitalization)
  Sender: FDA-Public Use
  Company Number: 163-21880-13090959

PATIENT
  Age: 80 Year
  Sex: Male
  Weight: 71.7 kg

DRUGS (12)
  1. REVLIMID (LENALIDOMIDE) (15 MILLIGRAM) (CAPSULES) [Suspect]
     Indication: PLASMA CELL MYELOMA
     Route: 048
     Dates: start: 201208
  2. ASPIRIN (ACETYLSALICYLIC ACID) [Concomitant]
  3. SENNA (SENNA) [Concomitant]
  4. RENAL (NEPHROVITE) [Concomitant]
  5. MIRALAX (MACROGOL) [Concomitant]
  6. GABAPENTIN (GABAPENTIN) [Concomitant]
  7. MEGACE ES (MEGESTROL ACETATE) [Concomitant]
  8. SYNTHROID (LEVOTHYROXINE SODIUM) [Concomitant]
  9. PROSCAR (LEVOTHYROXINE SODIUM) [Concomitant]
  10. COREG (CARVEDILOL) [Concomitant]
  11. WARFARIN (COUMADIN) (WARFARIN) [Concomitant]
  12. COLACE (DOCUSATE SODIUM) [Concomitant]

REACTIONS (1)
  - Pulmonary thrombosis [None]
